FAERS Safety Report 7491126-7 (Version None)
Quarter: 2011Q2

REPORT INFORMATION
  Report Type: 
  Country: None (occurrence: None)
  Receive Date: 20110519
  Receipt Date: 20110505
  Transmission Date: 20111010
  Serious: Yes (Hospitalization)
  Sender: FDA-Public Use
  Company Number: US-JNJFOC-20110202400

PATIENT
  Sex: Male
  Weight: 111.13 kg

DRUGS (15)
  1. METHOTREXATE [Concomitant]
     Route: 048
     Dates: start: 20110321
  2. CELEBREX [Concomitant]
     Dates: start: 20100825
  3. REMICADE [Suspect]
     Route: 042
     Dates: start: 20100331
  4. REMICADE [Suspect]
     Route: 042
     Dates: start: 20100428
  5. METHOTREXATE [Concomitant]
     Route: 048
  6. REMICADE [Suspect]
     Route: 042
     Dates: start: 20101013
  7. REMICADE [Suspect]
     Route: 042
     Dates: start: 20101208
  8. REMICADE [Suspect]
     Route: 042
     Dates: start: 20100818
  9. FOLIC ACID [Concomitant]
     Dates: start: 20100505
  10. AMBIEN [Concomitant]
     Dates: start: 20100825
  11. ZOCOR [Concomitant]
     Dates: start: 20091111
  12. REMICADE [Suspect]
     Indication: RHEUMATOID ARTHRITIS
     Dosage: ALSO REPORTED AS 400 MG; START DATE ALSO REPORTED AS 22-APR-2010
     Route: 042
     Dates: start: 20100316
  13. REMICADE [Suspect]
     Route: 042
     Dates: start: 20100622
  14. ACIPHEX [Concomitant]
     Dates: start: 20070612
  15. EFFEXOR XR [Concomitant]
     Dates: start: 20100222

REACTIONS (2)
  - METASTATIC CARCINOID TUMOUR [None]
  - SURGERY [None]
